FAERS Safety Report 10206381 (Version 1)
Quarter: 2014Q2

REPORT INFORMATION
  Report Type: Spontaneous
  Country: US (occurrence: None)
  Receive Date: 20140527
  Receipt Date: 20140527
  Transmission Date: 20141212
  Serious: Yes (Other)
  Sender: FDA-Public Use
  Company Number: None

PATIENT
  Age: 77 Year
  Sex: Female
  Weight: 83.92 kg

DRUGS (6)
  1. ESCITALOPRAM [Suspect]
     Indication: ANXIETY
     Dosage: 1 PILL
     Route: 048
     Dates: start: 20131024, end: 20131119
  2. AMITRIPTYLINE [Concomitant]
  3. PRILOSEC [Concomitant]
  4. OXYBUTERON [Concomitant]
  5. VITAMIN B12 [Concomitant]
  6. 81 MG ASPIRIN [Concomitant]

REACTIONS (2)
  - Diplopia [None]
  - Transient ischaemic attack [None]
